FAERS Safety Report 7588692-X (Version None)
Quarter: 2011Q3

REPORT INFORMATION
  Report Type: 
  Country: None (occurrence: None)
  Receive Date: 20110705
  Receipt Date: 20110622
  Transmission Date: 20111222
  Serious: Yes (Hospitalization, Other)
  Sender: FDA-Public Use
  Company Number: US-ELI_LILLY_AND_COMPANY-US201102003716

PATIENT
  Sex: Female

DRUGS (5)
  1. FORTEO [Suspect]
     Indication: OSTEOPOROSIS
     Dosage: 20 UG, DAILY (1/D)
     Route: 058
  2. FORTEO [Suspect]
     Dosage: 20 UG, QD
     Route: 058
  3. FORTEO [Suspect]
     Dosage: 20 UG, QD
     Route: 058
  4. COPAXONE [Concomitant]
     Indication: MULTIPLE SCLEROSIS
  5. FORTEO [Suspect]
     Dosage: 20 UG, QD
     Route: 058

REACTIONS (15)
  - BACTERIAL INFECTION [None]
  - COLON CANCER [None]
  - MOVEMENT DISORDER [None]
  - SNEEZING [None]
  - DIZZINESS [None]
  - COUGH [None]
  - DEVICE MISUSE [None]
  - ASTHENIA [None]
  - HEADACHE [None]
  - MULTIPLE SCLEROSIS [None]
  - VISUAL IMPAIRMENT [None]
  - ABDOMINAL PAIN UPPER [None]
  - WEIGHT DECREASED [None]
  - FALL [None]
  - GAIT DISTURBANCE [None]
